FAERS Safety Report 21867759 (Version 1)
Quarter: 2023Q1

REPORT INFORMATION
  Report Type: Spontaneous
  Country: US (occurrence: US)
  Receive Date: 20230116
  Receipt Date: 20230116
  Transmission Date: 20230418
  Serious: Yes (Other)
  Sender: FDA-Public Use
  Company Number: US-AMGEN-USASP2023001268

PATIENT
  Age: 14 Year
  Sex: Female

DRUGS (6)
  1. RITUXIMAB [Suspect]
     Active Substance: RITUXIMAB
     Indication: Delayed haemolytic transfusion reaction
     Dosage: 375 MILLIGRAM PER SQUARE METRE/DOSE X 4 DOSES
     Route: 065
  2. RITUXIMAB [Suspect]
     Active Substance: RITUXIMAB
     Indication: Sickle cell anaemia
     Dosage: 375 MILLIGRAM PER SQUARE METRE/DOSE, QWK X 2 DOSES
     Route: 065
  3. Immunoglobulin [Concomitant]
     Indication: Sickle cell anaemia
     Dosage: 1 GRAM PER KILOGRAM X 3 DAYS
     Route: 040
  4. Immunoglobulin [Concomitant]
     Indication: Delayed haemolytic transfusion reaction
     Dosage: 1 GRAM PER KILOGRAM X 1 DOSE
     Route: 040
  5. METHYLPREDNISOLONE [Concomitant]
     Active Substance: METHYLPREDNISOLONE
     Indication: Sickle cell anaemia
     Dosage: 2 MILLIGRAM PER KILOGRAM, QD, FOR A WEEK
  6. METHYLPREDNISOLONE [Concomitant]
     Active Substance: METHYLPREDNISOLONE
     Indication: Delayed haemolytic transfusion reaction
     Dosage: 2 MILLIGRAM PER KILOGRAM, QD X 5 DAYS

REACTIONS (4)
  - Delayed haemolytic transfusion reaction [Recovered/Resolved]
  - Engraft failure [Recovered/Resolved]
  - Treatment failure [Unknown]
  - Off label use [Unknown]
